FAERS Safety Report 25690116 (Version 1)
Quarter: 2025Q3

REPORT INFORMATION
  Report Type: Spontaneous
  Country: US (occurrence: US)
  Receive Date: 20250818
  Receipt Date: 20250818
  Transmission Date: 20251020
  Serious: No
  Sender: MYLAN
  Company Number: US-MYLANLABS-2025M1067390

PATIENT
  Age: 83 Year
  Sex: Female

DRUGS (4)
  1. ESTRADIOL [Suspect]
     Active Substance: ESTRADIOL
     Indication: Urinary incontinence
     Dosage: 0.01 PERCENT, 3XW (EVERY MONDAY, WEDNESDAY AND FRIDAY )
     Dates: start: 20250324
  2. ESTRADIOL [Suspect]
     Active Substance: ESTRADIOL
     Indication: Prophylaxis urinary tract infection
     Dosage: 0.01 PERCENT, 3XW (EVERY MONDAY, WEDNESDAY AND FRIDAY )
     Route: 067
     Dates: start: 20250324
  3. ESTRADIOL [Suspect]
     Active Substance: ESTRADIOL
     Dosage: 0.01 PERCENT, 3XW (EVERY MONDAY, WEDNESDAY AND FRIDAY )
     Route: 067
     Dates: start: 20250324
  4. ESTRADIOL [Suspect]
     Active Substance: ESTRADIOL
     Dosage: 0.01 PERCENT, 3XW (EVERY MONDAY, WEDNESDAY AND FRIDAY )
     Dates: start: 20250324

REACTIONS (2)
  - Off label use [Unknown]
  - Product packaging quantity issue [Unknown]

NARRATIVE: CASE EVENT DATE: 20250324
